FAERS Safety Report 11472681 (Version 1)
Quarter: 2015Q3

REPORT INFORMATION
  Report Type: Spontaneous
  Country: BR (occurrence: BR)
  Receive Date: 20150908
  Receipt Date: 20150908
  Transmission Date: 20151125
  Serious: Yes (Death, Hospitalization)
  Sender: FDA-Public Use
  Company Number: BR-SA-2015SA136466

PATIENT
  Age: 18 Year
  Sex: Female

DRUGS (4)
  1. ISONIAZID. [Suspect]
     Active Substance: ISONIAZID
     Indication: TUBERCULOSIS
     Route: 065
  2. RIFAMPICIN [Suspect]
     Active Substance: RIFAMPIN
     Indication: TUBERCULOSIS
     Route: 065
  3. PYRAZINAMIDE. [Suspect]
     Active Substance: PYRAZINAMIDE
     Indication: TUBERCULOSIS
     Route: 065
  4. ETHAMBUTOL [Suspect]
     Active Substance: ETHAMBUTOL HYDROCHLORIDE
     Indication: TUBERCULOSIS
     Route: 065

REACTIONS (14)
  - Platelet count increased [Fatal]
  - Face oedema [Fatal]
  - Lymphadenopathy [Fatal]
  - Aspartate aminotransferase increased [Fatal]
  - Gamma-glutamyltransferase increased [Fatal]
  - Acute hepatic failure [Fatal]
  - Drug reaction with eosinophilia and systemic symptoms [Fatal]
  - Rash maculo-papular [Fatal]
  - Blood alkaline phosphatase increased [Fatal]
  - Lymphocyte count increased [Fatal]
  - Blood albumin increased [Fatal]
  - Prothrombin time ratio increased [Fatal]
  - Alanine aminotransferase increased [Fatal]
  - Eosinophilia [Fatal]
